FAERS Safety Report 21279835 (Version 3)
Quarter: 2022Q4

REPORT INFORMATION
  Report Type: Report from Study
  Country: US (occurrence: US)
  Receive Date: 20220901
  Receipt Date: 20221021
  Transmission Date: 20230113
  Serious: Yes (Other)
  Sender: FDA-Public Use
  Company Number: US-BRISTOL-MYERS SQUIBB COMPANY-2022-095696

PATIENT
  Age: 49 Year
  Sex: Female

DRUGS (1)
  1. ZEPOSIA [Suspect]
     Active Substance: OZANIMOD HYDROCHLORIDE
     Indication: Multiple sclerosis
     Route: 048
     Dates: start: 20210212

REACTIONS (6)
  - Pulmonary congestion [Unknown]
  - COVID-19 [Recovering/Resolving]
  - Ear infection [Recovering/Resolving]
  - Sinusitis [Recovering/Resolving]
  - Nasopharyngitis [Unknown]
  - Gastrointestinal disorder [Unknown]
